FAERS Safety Report 5272407-4 (Version None)
Quarter: 2007Q1

REPORT INFORMATION
  Report Type: 
  Country: None (occurrence: None)
  Receive Date: 20070319
  Receipt Date: 20070313
  Transmission Date: 20070707
  Serious: Yes (Life-Threatening, Hospitalization)
  Sender: FDA-Public Use
  Company Number: S07-USA-00082-01

PATIENT
  Age: 82 Year
  Sex: Female
  Weight: 53.4791 kg

DRUGS (15)
  1. NAMENDA [Suspect]
     Indication: DEMENTIA ALZHEIMER'S TYPE
     Dosage: 10 MG BID PO
     Route: 048
     Dates: start: 20051121, end: 20051122
  2. NAMENDA [Suspect]
     Indication: DEMENTIA ALZHEIMER'S TYPE
     Dosage: 10 MG BID PO
     Route: 048
     Dates: start: 20061113, end: 20061118
  3. NAMENDA [Suspect]
     Indication: DEMENTIA ALZHEIMER'S TYPE
     Dosage: 5 MG QD PO
     Route: 048
     Dates: start: 20051031, end: 20051106
  4. NAMENDA [Suspect]
     Indication: DEMENTIA ALZHEIMER'S TYPE
     Dosage: 5 MG BID PO
     Route: 048
     Dates: start: 20051107, end: 20051113
  5. NAMENDA [Suspect]
     Indication: DEMENTIA ALZHEIMER'S TYPE
     Dosage: 15 MG QD PO
     Route: 048
     Dates: start: 20051114, end: 20051120
  6. NAMENDA [Suspect]
     Indication: DEMENTIA ALZHEIMER'S TYPE
     Dosage: 5 MG QD PO
     Route: 048
     Dates: start: 20061023, end: 20061029
  7. NAMENDA [Suspect]
     Indication: DEMENTIA ALZHEIMER'S TYPE
     Dosage: 5 MG BID PO
     Route: 048
     Dates: start: 20061030, end: 20061105
  8. NAMENDA [Suspect]
     Indication: DEMENTIA ALZHEIMER'S TYPE
     Dosage: 15 MG QD PO
     Route: 048
     Dates: start: 20061106, end: 20061112
  9. NORVASC [Concomitant]
  10. PLAVIX [Concomitant]
  11. LIPITOR [Concomitant]
  12. DIVOAN (VALSARTAN) [Concomitant]
  13. PAXIL [Concomitant]
  14. ASPIRIN [Concomitant]
  15. ZOCOR [Concomitant]

REACTIONS (9)
  - ACUTE MYOCARDIAL INFARCTION [None]
  - AORTIC ANEURYSM [None]
  - BLOOD PRESSURE INADEQUATELY CONTROLLED [None]
  - DIVERTICULUM [None]
  - FALL [None]
  - HAEMOGLOBIN DECREASED [None]
  - HIATUS HERNIA [None]
  - NIGHTMARE [None]
  - UPPER GASTROINTESTINAL HAEMORRHAGE [None]
